FAERS Safety Report 6424459-3 (Version None)
Quarter: 2009Q4

REPORT INFORMATION
  Report Type: 
  Country: None (occurrence: None)
  Receive Date: 20091103
  Receipt Date: 20091020
  Transmission Date: 20100525
  Serious: Yes (Hospitalization)
  Sender: FDA-Public Use
  Company Number: US-MYLANLABS-2009S1016179

PATIENT
  Age: 69 Year
  Sex: Male
  Weight: 74.5 kg

DRUGS (6)
  1. DOUBLE BLINDED STUDY MEDICATION [Suspect]
     Indication: HYPERTENSION
     Route: 048
     Dates: start: 20090720, end: 20090810
  2. HYDROCHLOROTHIAZIDE [Suspect]
     Indication: HYPERTENSION
     Route: 048
     Dates: start: 20090810
  3. TYLENOL [Concomitant]
     Indication: HEADACHE
     Route: 048
     Dates: start: 20090710
  4. MICARDIS HCT [Concomitant]
     Indication: HYPERTENSION
     Route: 048
     Dates: start: 20090405
  5. SIMVASTATIN [Concomitant]
     Indication: HYPERLIPIDAEMIA
     Route: 048
     Dates: start: 20090224, end: 20090608
  6. ASPIRIN [Concomitant]
     Indication: CARDIAC DISORDER
     Route: 048
     Dates: start: 20090801

REACTIONS (1)
  - MIGRAINE [None]
